FAERS Safety Report 24391536 (Version 2)
Quarter: 2025Q3

REPORT INFORMATION
  Report Type: Spontaneous
  Country: EU (occurrence: EU)
  Receive Date: 20241003
  Receipt Date: 20250810
  Transmission Date: 20251021
  Serious: Yes (Other)
  Sender: ALEXION PHARMACEUTICALS
  Company Number: None

PATIENT
  Age: 84 Year
  Sex: Male

DRUGS (2)
  1. DAPAGLIFLOZIN [Suspect]
     Active Substance: DAPAGLIFLOZIN
     Indication: Brain natriuretic peptide increased
     Dosage: 10 MILLIGRAM, QD
     Dates: start: 20240718
  2. FUROSEMIDE [Concomitant]
     Active Substance: FUROSEMIDE

REACTIONS (8)
  - Urinary tract infection [Unknown]
  - Polyuria [Unknown]
  - Apathy [Unknown]
  - Constipation [Unknown]
  - Testicular swelling [Unknown]
  - Dehydration [Unknown]
  - Urinary incontinence [Unknown]
  - Bladder pain [Unknown]

NARRATIVE: CASE EVENT DATE: 20240720
